FAERS Safety Report 18495315 (Version 1)
Quarter: 2020Q4

REPORT INFORMATION
  Report Type: Spontaneous
  Country: US (occurrence: US)
  Receive Date: 20201111
  Receipt Date: 20201111
  Transmission Date: 20210114
  Serious: No
  Sender: FDA-Public Use
  Company Number: None

PATIENT
  Age: 16 Year
  Sex: Male
  Weight: 63 kg

DRUGS (1)
  1. MONTELUKAST [Suspect]
     Active Substance: MONTELUKAST SODIUM

REACTIONS (7)
  - Scratch [None]
  - Sleep disorder [None]
  - Iron deficiency [None]
  - Attention deficit hyperactivity disorder [None]
  - Epistaxis [None]
  - Pruritus [None]
  - Sensory disturbance [None]

NARRATIVE: CASE EVENT DATE: 20121015
